FAERS Safety Report 9897125 (Version 1)
Quarter: 2014Q1

REPORT INFORMATION
  Report Type: Spontaneous
  Country: GB (occurrence: GB)
  Receive Date: 20140214
  Receipt Date: 20140214
  Transmission Date: 20141002
  Serious: Yes (Other)
  Sender: FDA-Public Use
  Company Number: GB-DRREDDYS-GER/UKI/14/0038008

PATIENT
  Sex: Female

DRUGS (1)
  1. LAMOTRIGINE [Suspect]
     Indication: PRODUCT USED FOR UNKNOWN INDICATION

REACTIONS (6)
  - Anal inflammation [Unknown]
  - Bowel movement irregularity [Unknown]
  - Defaecation urgency [Unknown]
  - Intestinal obstruction [Unknown]
  - Dermatitis diaper [Unknown]
  - Convulsion [Unknown]
